FAERS Safety Report 8561454-2 (Version None)
Quarter: 2012Q3

REPORT INFORMATION
  Report Type: 
  Country: None (occurrence: None)
  Receive Date: 20120802
  Receipt Date: 20120727
  Transmission Date: 20120928
  Serious: Yes (Hospitalization)
  Sender: FDA-Public Use
  Company Number: JP-GLAXOSMITHKLINE-B0819551A

PATIENT
  Sex: Female
  Weight: 56 kg

DRUGS (9)
  1. NORVASC [Concomitant]
     Indication: HYPERTENSION
     Route: 048
  2. PROGESTERONE [Concomitant]
     Indication: BREAST CANCER
     Dosage: 600MG PER DAY
     Route: 048
     Dates: start: 20120319
  3. CEFAZOLIN SODIUM [Concomitant]
     Indication: PROPHYLAXIS AGAINST DIARRHOEA
     Route: 048
     Dates: start: 20120119
  4. BASEN [Concomitant]
     Indication: DIABETES MELLITUS
     Route: 048
  5. HIRUDOID [Concomitant]
     Indication: PROPHYLAXIS
     Route: 061
     Dates: start: 20120119
  6. ENALAPRIL MALEATE [Concomitant]
     Indication: HYPERTENSION
     Route: 048
  7. TYKERB [Suspect]
     Indication: BREAST CANCER
     Dosage: 1000MG PER DAY
     Route: 048
     Dates: start: 20120119, end: 20120603
  8. XELODA [Suspect]
     Dosage: 1800MG PER DAY
     Route: 048
     Dates: start: 20120119, end: 20120603
  9. SITAGLIPTIN [Concomitant]
     Indication: DIABETES MELLITUS
     Route: 048

REACTIONS (1)
  - ACUTE PRERENAL FAILURE [None]
